FAERS Safety Report 25779613 (Version 2)
Quarter: 2025Q4

REPORT INFORMATION
  Report Type: Report from Study
  Country: US (occurrence: US)
  Receive Date: 20250909
  Receipt Date: 20251204
  Transmission Date: 20260117
  Serious: Yes (Other)
  Sender: CSL BEHRING
  Company Number: US-BEH-2024180790

PATIENT
  Age: 74 Year
  Sex: Female
  Weight: 83 kg

DRUGS (13)
  1. BERINERT [Suspect]
     Active Substance: HUMAN C1-ESTERASE INHIBITOR
     Indication: Hereditary angioedema
     Dosage: 5000 IU/KG, BIW
     Route: 065
  2. BERINERT [Suspect]
     Active Substance: HUMAN C1-ESTERASE INHIBITOR
     Indication: Prophylaxis
     Dosage: 3000 IU, BIW
     Route: 058
     Dates: start: 201901
  3. BERINERT [Suspect]
     Active Substance: HUMAN C1-ESTERASE INHIBITOR
     Dosage: 5000 IU, BIW(EVERY 3-4 DAYS)
     Route: 058
     Dates: start: 202503
  4. BERINERT [Suspect]
     Active Substance: HUMAN C1-ESTERASE INHIBITOR
     Dosage: 5000 IU/KG, BIW
     Route: 058
     Dates: start: 20250801, end: 20250831
  5. BERINERT [Suspect]
     Active Substance: HUMAN C1-ESTERASE INHIBITOR
     Indication: Hereditary angioedema
     Dosage: 2000 IU, BIW
     Route: 058
     Dates: start: 201901
  6. BERINERT [Suspect]
     Active Substance: HUMAN C1-ESTERASE INHIBITOR
     Indication: Prophylaxis
  7. ICATIBANT ACETATE [Concomitant]
     Active Substance: ICATIBANT ACETATE
     Dosage: PFS (3-PACK)
     Route: 065
  8. AMLODIPINE BESYLATE [Concomitant]
     Active Substance: AMLODIPINE BESYLATE
  9. HYDROCODONE [Concomitant]
     Active Substance: HYDROCODONE
  10. ACETAMINOPHEN [Concomitant]
     Active Substance: ACETAMINOPHEN
  11. METOPROLOL TARTRATE [Concomitant]
     Active Substance: METOPROLOL TARTRATE
  12. SERTRALINE HYDROCHLORIDE [Concomitant]
     Active Substance: SERTRALINE HYDROCHLORIDE
  13. VITAMIN D [Concomitant]
     Active Substance: VITAMIN D NOS

REACTIONS (9)
  - Hereditary angioedema [Unknown]
  - Hereditary angioedema [Unknown]
  - Hereditary angioedema [Recovered/Resolved]
  - Hereditary angioedema [Recovered/Resolved]
  - Hereditary angioedema [Not Recovered/Not Resolved]
  - Hereditary angioedema [Recovered/Resolved]
  - Accidental underdose [Unknown]
  - Product dose omission in error [Unknown]
  - Illness [Recovering/Resolving]

NARRATIVE: CASE EVENT DATE: 20240915
